FAERS Safety Report 14640893 (Version 3)
Quarter: 2018Q3

REPORT INFORMATION
  Report Type: Report from Study
  Country: US (occurrence: US)
  Receive Date: 20180315
  Receipt Date: 20180907
  Transmission Date: 20181010
  Serious: Yes (Hospitalization)
  Sender: FDA-Public Use
  Company Number: US-GILEAD-2018-0323243

PATIENT
  Age: 69 Year
  Sex: Female

DRUGS (1)
  1. AMBRISENTAN [Suspect]
     Active Substance: AMBRISENTAN
     Indication: PULMONARY ARTERIAL HYPERTENSION
     Dosage: 5 MG, QD
     Route: 065
     Dates: start: 20170901

REACTIONS (7)
  - Feeding disorder [Unknown]
  - Intentional product use issue [Not Recovered/Not Resolved]
  - Hiatus hernia [Unknown]
  - Herpes zoster [Unknown]
  - Electrolyte imbalance [Not Recovered/Not Resolved]
  - Dehydration [Unknown]
  - Swelling [Unknown]

NARRATIVE: CASE EVENT DATE: 20180223
